FAERS Safety Report 5645340-3 (Version None)
Quarter: 2008Q1

REPORT INFORMATION
  Report Type: 
  Country: None (occurrence: None)
  Receive Date: 20080229
  Receipt Date: 20080215
  Transmission Date: 20080703
  Serious: Yes (Other)
  Sender: FDA-Public Use
  Company Number: B0508944A

PATIENT
  Age: 53 Year
  Sex: Female

DRUGS (5)
  1. AMOXICILLIN SODIUM + CLAVULANIC ACID [Suspect]
     Indication: PROPHYLAXIS
     Dosage: 2G PER DAY
     Route: 042
     Dates: start: 20080125, end: 20080125
  2. FRAXIPARINA [Suspect]
     Indication: PROPHYLAXIS
     Dosage: .3ML PER DAY
     Route: 058
     Dates: start: 20080124
  3. PERFALGAN [Suspect]
     Indication: ANALGESIA
     Dosage: 1G PER DAY
     Route: 042
     Dates: start: 20080125
  4. NOLOTIL [Suspect]
     Indication: ANALGESIA
     Dosage: 2G PER DAY
     Route: 042
     Dates: start: 20080125
  5. DORMICUM [Concomitant]
     Indication: PREOPERATIVE CARE
     Dosage: 7.5MG PER DAY
     Route: 048
     Dates: start: 20080124, end: 20080125

REACTIONS (3)
  - ERYTHEMA [None]
  - PRURITUS [None]
  - RASH [None]
